FAERS Safety Report 10563356 (Version 2)
Quarter: 2014Q4

REPORT INFORMATION
  Report Type: Spontaneous
  Country: CN (occurrence: CN)
  Receive Date: 20141104
  Receipt Date: 20141117
  Transmission Date: 20150529
  Serious: Yes (Life-Threatening, Other)
  Sender: FDA-Public Use
  Company Number: CN-GLAXOSMITHKLINE-CN2014GSK011044

PATIENT
  Age: 69 Year
  Sex: Male
  Weight: 60 kg

DRUGS (7)
  1. VITAMIN K4 [Suspect]
     Active Substance: ACETOMENAPHTHONE
     Indication: PREOPERATIVE CARE
     Dosage: UNK
     Dates: start: 201410
  2. CEFUROXIME. [Suspect]
     Active Substance: CEFUROXIME
     Indication: INFECTION PROPHYLAXIS
     Dosage: UNK
     Route: 042
     Dates: start: 20141017, end: 20141017
  3. RALTITREXED [Suspect]
     Active Substance: RALTITREXED
     Indication: PREOPERATIVE CARE
     Dosage: UNK
     Route: 042
     Dates: start: 201410
  4. TINIDAZOLE. [Suspect]
     Active Substance: TINIDAZOLE
     Indication: PREOPERATIVE CARE
     Dosage: UNK
     Dates: start: 201410
  5. FRUCTOSE [Suspect]
     Active Substance: FRUCTOSE
     Indication: PREOPERATIVE CARE
     Dosage: UNK
     Route: 048
     Dates: start: 201410
  6. ENTERAL NUTRITION [Suspect]
     Active Substance: DIETARY SUPPLEMENT
     Indication: PREOPERATIVE CARE
     Dosage: UNK
     Route: 042
     Dates: start: 201410
  7. ELECTROLYTES [Suspect]
     Active Substance: ELECTROLYTES NOS
     Indication: PREOPERATIVE CARE
     Dosage: UNK
     Dates: start: 201410

REACTIONS (8)
  - Heart rate increased [Unknown]
  - Drug hypersensitivity [Unknown]
  - Ventricular arrhythmia [Unknown]
  - Bundle branch block left [None]
  - Blood pressure decreased [Unknown]
  - Erythema [Unknown]
  - Drug eruption [Unknown]
  - Anaphylactic shock [Recovered/Resolved]

NARRATIVE: CASE EVENT DATE: 20141017
